FAERS Safety Report 5608440-X (Version None)
Quarter: 2008Q1

REPORT INFORMATION
  Report Type: 
  Country: None (occurrence: None)
  Receive Date: 20080130
  Receipt Date: 20080124
  Transmission Date: 20080703
  Serious: Yes (Other)
  Sender: FDA-Public Use
  Company Number: US-ALLERGAN-0801021US

PATIENT
  Sex: Female

DRUGS (1)
  1. BOTOX [Suspect]
     Indication: DYSTONIA
     Dosage: 300 UNITS, SINGLE
     Route: 030
     Dates: start: 20071201, end: 20071201

REACTIONS (5)
  - BREATH ODOUR [None]
  - DYSPHAGIA [None]
  - OESOPHAGEAL DISORDER [None]
  - PNEUMONIA [None]
  - SENSATION OF FOREIGN BODY [None]
